FAERS Safety Report 17017912 (Version 3)
Quarter: 2019Q4

REPORT INFORMATION
  Report Type: Spontaneous
  Country: UY (occurrence: UY)
  Receive Date: 20191111
  Receipt Date: 20191211
  Transmission Date: 20200122
  Serious: Yes (Other)
  Sender: FDA-Public Use
  Company Number: NVSC2019UY028025

PATIENT
  Sex: Female

DRUGS (2)
  1. MEKINIST [Suspect]
     Active Substance: TRAMETINIB DIMETHYL SULFOXIDE
     Indication: MALIGNANT MELANOMA STAGE III
     Dosage: 2 MG, QD
     Route: 048
     Dates: start: 20190530, end: 20191021
  2. TAFINLAR [Suspect]
     Active Substance: DABRAFENIB MESYLATE
     Indication: MALIGNANT MELANOMA STAGE III
     Dosage: 75 MG, QD
     Route: 048
     Dates: start: 20190530, end: 20191021

REACTIONS (5)
  - Vision blurred [Not Recovered/Not Resolved]
  - Uveitis [Recovering/Resolving]
  - Retinal detachment [Not Recovered/Not Resolved]
  - Vogt-Koyanagi-Harada disease [Unknown]
  - Iridocyclitis [Not Recovered/Not Resolved]

NARRATIVE: CASE EVENT DATE: 20191021
